FAERS Safety Report 7655217-X (Version None)
Quarter: 2011Q3

REPORT INFORMATION
  Report Type: 
  Country: None (occurrence: None)
  Receive Date: 20110804
  Receipt Date: 20110725
  Transmission Date: 20111222
  Serious: Yes (Other)
  Sender: FDA-Public Use
  Company Number: JP-JNJFOC-20110703319

PATIENT
  Age: 18 Year
  Sex: Male

DRUGS (6)
  1. TEGRETOL [Concomitant]
     Route: 048
  2. LITHIUM CARBONATE [Concomitant]
     Route: 048
  3. TASMOLIN [Concomitant]
     Route: 048
  4. INVEGA [Suspect]
     Indication: AUTISM
     Route: 048
  5. INVEGA [Suspect]
     Route: 048
  6. RISPERDAL [Suspect]
     Indication: AUTISM
     Route: 048
     Dates: end: 20110719

REACTIONS (4)
  - URINE ANALYSIS ABNORMAL [None]
  - CHROMATURIA [None]
  - HALLUCINATION, AUDITORY [None]
  - OFF LABEL USE [None]
